FAERS Safety Report 10417943 (Version 1)
Quarter: 2014Q3

REPORT INFORMATION
  Report Type: Spontaneous
  Country: DK (occurrence: DK)
  Receive Date: 20140829
  Receipt Date: 20140829
  Transmission Date: 20150326
  Serious: Yes (Hospitalization)
  Sender: FDA-Public Use
  Company Number: DK-TEVA-504091ISR

PATIENT
  Age: 85 Year
  Sex: Female

DRUGS (6)
  1. HUMIRA [Suspect]
     Active Substance: ADALIMUMAB
     Indication: RHEUMATOID ARTHRITIS
     Dosage: STRENGTH: 40 MG
     Route: 030
     Dates: start: 20030106, end: 20140806
  2. ALENDRONAT ^ARROW^ [Concomitant]
     Indication: OSTEOPOROSIS
     Dates: start: 2002
  3. LATANOPROST. [Concomitant]
     Active Substance: LATANOPROST
     Indication: INTRAOCULAR PRESSURE INCREASED
  4. METHOTREXATE (METHOTREXATE SODIUM) [Suspect]
     Active Substance: METHOTREXATE SODIUM
     Indication: RHEUMATOID ARTHRITIS
     Dosage: 2.8571 MILLIGRAM DAILY; STRENGTH: 2,5 MG
     Route: 048
     Dates: start: 2002, end: 20140805
  5. TRUSOPT [Concomitant]
     Active Substance: DORZOLAMIDE HYDROCHLORIDE
     Indication: INTRAOCULAR PRESSURE INCREASED
  6. FOLIMET [Concomitant]
     Indication: FOLATE DEFICIENCY
     Dates: start: 2002

REACTIONS (4)
  - Dehydration [Unknown]
  - Decreased appetite [Unknown]
  - Infection [Unknown]
  - Leukopenia [Recovered/Resolved]

NARRATIVE: CASE EVENT DATE: 20140724
